FAERS Safety Report 11640837 (Version 1)
Quarter: 2015Q4

REPORT INFORMATION
  Report Type: Spontaneous
  Country: US (occurrence: US)
  Receive Date: 20151019
  Receipt Date: 20151019
  Transmission Date: 20160304
  Serious: No
  Sender: FDA-Public Use
  Company Number: US-GLAXOSMITHKLINE-US2015145411

PATIENT
  Sex: Female

DRUGS (3)
  1. SPIRIVA [Concomitant]
     Active Substance: TIOTROPIUM BROMIDE MONOHYDRATE
  2. VOLTAREN [Concomitant]
     Active Substance: DICLOFENAC SODIUM
     Dosage: UNK
  3. BREO ELLIPTA [Suspect]
     Active Substance: FLUTICASONE FUROATE\VILANTEROL TRIFENATATE
     Indication: DYSPNOEA
     Dosage: 1 PUFF(S), 1D
     Route: 055

REACTIONS (7)
  - Performance status decreased [Unknown]
  - Stomatitis [Recovered/Resolved]
  - Mouth swelling [Recovered/Resolved]
  - Oral discomfort [Recovered/Resolved]
  - Mouth injury [Recovered/Resolved]
  - Device use error [Recovered/Resolved]
  - Dyspnoea [Recovering/Resolving]
